FAERS Safety Report 4865808-7 (Version None)
Quarter: 2005Q4

REPORT INFORMATION
  Report Type: 
  Country: None (occurrence: None)
  Receive Date: 20051220
  Receipt Date: 20051207
  Transmission Date: 20060501
  Serious: Yes (Life-Threatening)
  Sender: FDA-Public Use
  Company Number: SP-2005-002625

PATIENT
  Age: 57 Year
  Sex: Male

DRUGS (2)
  1. PLAUNAC [Suspect]
     Indication: HYPERTENSION
     Dosage: 20 MG QD PO
     Route: 048
     Dates: start: 20051001, end: 20051203
  2. AULIN ^BOEHRINGER^ [Suspect]
     Dosage: 100 MG BID PO
     Route: 048
     Dates: start: 20051203, end: 20051203

REACTIONS (1)
  - ANAPHYLACTIC SHOCK [None]
